FAERS Safety Report 24140872 (Version 2)
Quarter: 2024Q3

REPORT INFORMATION
  Report Type: Spontaneous
  Country: CH (occurrence: CH)
  Receive Date: 20240726
  Receipt Date: 20240809
  Transmission Date: 20241017
  Serious: Yes (Life-Threatening, Hospitalization)
  Sender: TEVA
  Company Number: CH-TEVA-VS-3223160

PATIENT
  Age: 10 Month
  Sex: Male

DRUGS (3)
  1. ALBUTEROL [Suspect]
     Active Substance: ALBUTEROL
     Indication: Respiratory distress
     Route: 065
  2. EPINEPHRINE [Suspect]
     Active Substance: EPINEPHRINE
     Indication: Respiratory distress
     Dosage: HOURLY
     Route: 065
  3. DIMETHICONE [Suspect]
     Active Substance: DIMETHICONE
     Indication: Salivary hypersecretion
     Route: 065

REACTIONS (1)
  - Drug ineffective [Unknown]
